FAERS Safety Report 9193753 (Version 1)
Quarter: 2013Q1

REPORT INFORMATION
  Report Type: Spontaneous
  Country: US (occurrence: None)
  Receive Date: 20130325
  Receipt Date: 20130325
  Transmission Date: 20140127
  Serious: Yes (Other)
  Sender: FDA-Public Use
  Company Number: None

PATIENT
  Age: 23 Year
  Sex: Male
  Weight: 71.67 kg

DRUGS (2)
  1. SEROQUEL [Suspect]
     Dates: start: 20061031, end: 20070110
  2. SEROQUEL [Suspect]
     Indication: BIPOLAR DISORDER
     Dates: start: 20061031, end: 20070110

REACTIONS (8)
  - Feeling abnormal [None]
  - Withdrawal syndrome [None]
  - Hypoaesthesia [None]
  - Paraesthesia [None]
  - Paraesthesia [None]
  - Dizziness [None]
  - Hyperacusis [None]
  - Fear [None]
